FAERS Safety Report 11717614 (Version 1)
Quarter: 2015Q4

REPORT INFORMATION
  Report Type: Spontaneous
  Country: US (occurrence: US)
  Receive Date: 20151110
  Receipt Date: 20151110
  Transmission Date: 20160304
  Serious: Yes (Other)
  Sender: FDA-Public Use
  Company Number: US-009507513-1511USA003544

PATIENT
  Age: 65 Year
  Sex: Female

DRUGS (4)
  1. REBETOL [Suspect]
     Active Substance: RIBAVIRIN
     Indication: HEPATITIS C
     Dosage: UNK
     Route: 048
     Dates: start: 20130213
  2. INTRON A [Suspect]
     Active Substance: INTERFERON ALFA-2B
     Indication: HEPATITIS C
     Dosage: UNK
     Dates: start: 20130213
  3. TELAPREVIR [Suspect]
     Active Substance: TELAPREVIR
     Dosage: UNK
     Dates: start: 20130213, end: 20130306
  4. BENDROFLUMETHIAZIDE [Concomitant]
     Active Substance: BENDROFLUMETHIAZIDE
     Indication: HYPERTENSION

REACTIONS (19)
  - Feeling abnormal [Unknown]
  - Dizziness [Unknown]
  - Lethargy [Recovered/Resolved]
  - Rash [Recovered/Resolved]
  - Malaise [Unknown]
  - Abdominal discomfort [Unknown]
  - Peripheral swelling [Recovered/Resolved]
  - Renal disorder [Recovered/Resolved]
  - Fatigue [Unknown]
  - Heart rate decreased [Unknown]
  - Blood creatinine increased [Recovered/Resolved]
  - Dry mouth [Unknown]
  - Swelling face [Recovered/Resolved]
  - Blood pressure decreased [Unknown]
  - Feeling hot [Unknown]
  - Back pain [Recovered/Resolved]
  - Abdominal distension [Unknown]
  - Asthenia [Recovered/Resolved]
  - Polyuria [Unknown]

NARRATIVE: CASE EVENT DATE: 2013
